FAERS Safety Report 10071148 (Version 2)
Quarter: 2014Q2

REPORT INFORMATION
  Report Type: Spontaneous
  Country: AT (occurrence: AT)
  Receive Date: 20140410
  Receipt Date: 20140527
  Transmission Date: 20141212
  Serious: Yes (Other)
  Sender: FDA-Public Use
  Company Number: AT-PFIZER INC-2014097497

PATIENT
  Sex: 0

DRUGS (1)
  1. GABAPENTIN [Suspect]

REACTIONS (2)
  - Hepatic cirrhosis [Unknown]
  - Pneumonia [Unknown]
